FAERS Safety Report 11639615 (Version 1)
Quarter: 2015Q4

REPORT INFORMATION
  Report Type: Spontaneous
  Country: SE (occurrence: SE)
  Receive Date: 20151019
  Receipt Date: 20151019
  Transmission Date: 20160304
  Serious: Yes (Hospitalization)
  Sender: FDA-Public Use
  Company Number: SE-TEVA-602057ISR

PATIENT
  Age: 74 Year
  Sex: Female

DRUGS (2)
  1. WARAN [Suspect]
     Active Substance: WARFARIN SODIUM
  2. RISPERIDONE. [Suspect]
     Active Substance: RISPERIDONE

REACTIONS (2)
  - International normalised ratio [Unknown]
  - Extrapyramidal disorder [Unknown]
